FAERS Safety Report 25750879 (Version 1)
Quarter: 2025Q3

REPORT INFORMATION
  Report Type: Spontaneous
  Country: US (occurrence: None)
  Receive Date: 20250830
  Receipt Date: 20250830
  Transmission Date: 20251021
  Serious: No
  Sender: FDA-CTU
  Company Number: None

PATIENT
  Age: 77 Month
  Sex: Male
  Weight: 99.9 kg

DRUGS (11)
  1. WEGOVY [Suspect]
     Active Substance: SEMAGLUTIDE
     Dates: start: 20250814
  2. CLOPIDOGREL [Concomitant]
     Active Substance: CLOPIDOGREL BISULFATE
  3. PANTOPRAZOLE SODIUM [Concomitant]
     Active Substance: PANTOPRAZOLE SODIUM
  4. ATORVASTATIN [Concomitant]
     Active Substance: ATORVASTATIN
  5. amplodipine [Concomitant]
  6. METOPROLOL [Concomitant]
     Active Substance: METOPROLOL
  7. LISINOPRIL [Concomitant]
     Active Substance: LISINOPRIL
  8. Every man^s multivitamin 55+ [Concomitant]
  9. ester C [Concomitant]
  10. b12 [Concomitant]
  11. folate complex [Concomitant]

REACTIONS (7)
  - Nausea [None]
  - Diarrhoea [None]
  - Dyspepsia [None]
  - Dyspepsia [None]
  - Fatigue [None]
  - Social avoidant behaviour [None]
  - Fatigue [None]

NARRATIVE: CASE EVENT DATE: 20250814
